FAERS Safety Report 24466537 (Version 1)
Quarter: 2024Q4

REPORT INFORMATION
  Report Type: Spontaneous
  Country: US (occurrence: US)
  Receive Date: 20241018
  Receipt Date: 20241018
  Transmission Date: 20250114
  Serious: Yes (Hospitalization)
  Sender: LEXICON PHARMACEUTICALS
  Company Number: US-LEX-000519

PATIENT
  Age: 69 Year
  Sex: Male
  Weight: 136.08 kg

DRUGS (1)
  1. INPEFA [Suspect]
     Active Substance: SOTAGLIFLOZIN
     Indication: Cardiac failure
     Route: 065
     Dates: start: 2024

REACTIONS (2)
  - Fall [Recovering/Resolving]
  - Multiple fractures [Recovering/Resolving]

NARRATIVE: CASE EVENT DATE: 20240901
